FAERS Safety Report 24148782 (Version 1)
Quarter: 2024Q3

REPORT INFORMATION
  Report Type: Spontaneous
  Country: US (occurrence: US)
  Receive Date: 20240729
  Receipt Date: 20240729
  Transmission Date: 20241016
  Serious: Yes (Hospitalization, Other)
  Sender: BRISTOL MYERS SQUIBB
  Company Number: US-BRISTOL-MYERS SQUIBB COMPANY-2024-116724

PATIENT
  Age: 78 Year
  Sex: Female
  Weight: 88.45 kg

DRUGS (2)
  1. REVLIMID [Suspect]
     Active Substance: LENALIDOMIDE
     Indication: Plasma cell myeloma
     Dosage: ONCE DAILY FOR 7 DAYS OF EACH 28 DAY CYCLE
     Route: 048
     Dates: start: 202210
  2. NINLARO [Concomitant]
     Active Substance: IXAZOMIB CITRATE
     Indication: Plasma cell myeloma
     Dosage: ONCE WEEKLY
     Route: 048

REACTIONS (6)
  - Cough [Recovering/Resolving]
  - Feeling abnormal [Recovering/Resolving]
  - Rhinorrhoea [Recovering/Resolving]
  - Plasma cell myeloma [Recovering/Resolving]
  - Viral infection [Recovering/Resolving]
  - Off label use [Unknown]

NARRATIVE: CASE EVENT DATE: 20240704
